FAERS Safety Report 20612793 (Version 1)
Quarter: 2022Q1

REPORT INFORMATION
  Report Type: Report from Study
  Country: US (occurrence: US)
  Receive Date: 20220318
  Receipt Date: 20220318
  Transmission Date: 20220423
  Serious: No
  Sender: FDA-Public Use
  Company Number: US-INCYTE CORPORATION-2022IN001333

PATIENT

DRUGS (18)
  1. JAKAFI [Suspect]
     Active Substance: RUXOLITINIB
     Indication: Thrombocytopenia
     Dosage: 15 MILLIGRAM, BID
     Route: 048
     Dates: start: 20200617, end: 20201018
  2. JAKAFI [Suspect]
     Active Substance: RUXOLITINIB
     Dosage: 15 MILLIGRAM, BID
     Route: 048
     Dates: start: 20200625
  3. JAKAFI [Suspect]
     Active Substance: RUXOLITINIB
     Dosage: 15 MILLIGRAM, QD
     Route: 048
     Dates: start: 20201019, end: 20210330
  4. JAKAFI [Suspect]
     Active Substance: RUXOLITINIB
     Dosage: 7.5 MILLIGRAM, QD
     Route: 048
     Dates: start: 20210331, end: 20210510
  5. JAKAFI [Suspect]
     Active Substance: RUXOLITINIB
     Dosage: 15 MILLIGRAM, QD
     Route: 048
     Dates: start: 20210511
  6. CLONIDINE [Concomitant]
     Active Substance: CLONIDINE
     Indication: Hypertension
     Dosage: 0.1 MILLIGRAM, BID
     Route: 065
     Dates: start: 2014
  7. FENOFIBRATE [Concomitant]
     Active Substance: FENOFIBRATE
     Indication: Hypertriglyceridaemia
     Dosage: 160 MILLIGRAM, QD
     Route: 065
     Dates: start: 2014
  8. LISINOPRIL [Concomitant]
     Active Substance: LISINOPRIL
     Indication: Hypertension
     Dosage: 10 MILLIGRAM, QD
     Route: 065
     Dates: start: 2014
  9. AMLODIPINE [Concomitant]
     Active Substance: AMLODIPINE BESYLATE
     Indication: Hypertension
     Dosage: 5 MILLIGRAM, QD
     Route: 065
     Dates: start: 20170817, end: 20200708
  10. AMIODARONE [Concomitant]
     Active Substance: AMIODARONE
     Indication: Atrial flutter
     Dosage: 200 MILLIGRAM, QD
     Route: 065
     Dates: start: 20180116
  11. METOPROLOL [Concomitant]
     Active Substance: METOPROLOL
     Indication: Hypertension
     Dosage: 50 MILLIGRAM, BID
     Route: 065
     Dates: start: 20180601
  12. ZYRTEC [Concomitant]
     Active Substance: CETIRIZINE HYDROCHLORIDE
     Indication: Seasonal allergy
     Dosage: 10 MILLIGRAM, QD
     Route: 065
     Dates: start: 20180521
  13. CHLORTHALIDONE [Concomitant]
     Active Substance: CHLORTHALIDONE
     Indication: Hypertension
     Dosage: 25 MILLIGRAM, QD
     Route: 065
     Dates: start: 20181031
  14. ELIQUIS [Concomitant]
     Active Substance: APIXABAN
     Indication: Factor V Leiden carrier
     Dosage: 2.5 MILLIGRAM, BID
     Route: 065
     Dates: start: 20181217, end: 20220118
  15. VITAMIN D3 [Concomitant]
     Active Substance: CHOLECALCIFEROL
     Indication: Vitamin supplementation
     Dosage: 50 MICROGRAM, QD
     Route: 065
     Dates: start: 20140305
  16. HYDROXYUREA [Concomitant]
     Active Substance: HYDROXYUREA
     Indication: Thrombocytopenia
     Dosage: 4500 MILLIGRAM
     Route: 065
     Dates: start: 20190118, end: 20200620
  17. HYDROCODONE [Concomitant]
     Active Substance: HYDROCODONE
     Indication: Abdominal pain
     Dosage: 2 TAB PRN
     Route: 065
     Dates: start: 20200623, end: 20200810
  18. XARELTO [Concomitant]
     Active Substance: RIVAROXABAN
     Indication: Thrombocytopenia
     Dosage: 10 MILLIGRAM, QD
     Route: 065
     Dates: start: 20220118

REACTIONS (7)
  - Dehydration [Recovered/Resolved]
  - Hepatosplenomegaly [Recovering/Resolving]
  - Dysuria [Recovered/Resolved]
  - Fatigue [Recovering/Resolving]
  - Arthralgia [Recovering/Resolving]
  - COVID-19 [Recovered/Resolved]
  - Dyspnoea [Recovering/Resolving]

NARRATIVE: CASE EVENT DATE: 20200623
